FAERS Safety Report 19363653 (Version 1)
Quarter: 2021Q2

REPORT INFORMATION
  Report Type: Spontaneous
  Country: US (occurrence: US)
  Receive Date: 20210603
  Receipt Date: 20210603
  Transmission Date: 20210717
  Serious: No
  Sender: FDA-Public Use
  Company Number: US-HIKMA PHARMACEUTICALS USA INC.-US-H14001-21-02085

PATIENT
  Sex: Female
  Weight: 106.14 kg

DRUGS (10)
  1. PREDNISONE. [Suspect]
     Active Substance: PREDNISONE
     Indication: RASH
     Route: 065
  2. BENADRYL [Suspect]
     Active Substance: DIPHENHYDRAMINE HYDROCHLORIDE
     Indication: RASH
     Dosage: UNKNOWN
     Route: 065
  3. CORTISONE [Concomitant]
     Active Substance: CORTISONE
     Dosage: UNKNOWN
     Route: 065
  4. PREDNISONE. [Suspect]
     Active Substance: PREDNISONE
     Route: 065
  5. TRIAMCINOLONE [Concomitant]
     Active Substance: TRIAMCINOLONE
     Indication: RASH
     Dosage: UNKNOWN
     Route: 065
  6. COVID?19 VACCINE NOS. [Suspect]
     Active Substance: COVID-19 VACCINE NOS
     Indication: IMMUNISATION
     Dosage: UNKNOWN
     Route: 065
     Dates: start: 20210129
  7. ZYRTEC [Concomitant]
     Active Substance: CETIRIZINE HYDROCHLORIDE
     Indication: RASH
     Dosage: UNKNOWN
     Route: 065
  8. CORTISONE [Concomitant]
     Active Substance: CORTISONE
     Indication: RASH
     Dosage: UNKNOWN
     Route: 065
  9. COVID?19 VACCINE NOS. [Suspect]
     Active Substance: COVID-19 VACCINE NOS
     Dosage: UNKNOWN
     Route: 065
     Dates: start: 20210226
  10. PEPCID [Concomitant]
     Active Substance: FAMOTIDINE
     Indication: RASH
     Dosage: UNKNOWN
     Route: 065

REACTIONS (3)
  - Somnolence [Unknown]
  - Thinking abnormal [Unknown]
  - Drug interaction [Unknown]
